FAERS Safety Report 22221490 (Version 1)
Quarter: 2023Q2

REPORT INFORMATION
  Report Type: Report from Study
  Country: ES (occurrence: ES)
  Receive Date: 20230418
  Receipt Date: 20230418
  Transmission Date: 20230722
  Serious: Yes (Hospitalization)
  Sender: FDA-Public Use
  Company Number: None

PATIENT
  Age: 89 Year
  Sex: Male

DRUGS (5)
  1. SIMVASTATIN [Interacting]
     Active Substance: SIMVASTATIN
     Indication: Product used for unknown indication
     Dosage: (1023A)
     Route: 065
     Dates: start: 20130218, end: 20221030
  2. PRADAXA [Interacting]
     Active Substance: DABIGATRAN ETEXILATE MESYLATE
     Indication: Atrial fibrillation
     Dosage: 10 CAPSULES
     Route: 065
     Dates: start: 20220929
  3. ALZERTA [Concomitant]
     Indication: Product used for unknown indication
     Dosage: 13.3 MILLIGRAM DAILY; 13.3 MG/24 H, EFG, 60 (2 X 30) TRANSDERMAL PATCHES
     Route: 065
     Dates: start: 20161111
  4. SPIRONOLACTONE [Concomitant]
     Active Substance: SPIRONOLACTONE
     Indication: Product used for unknown indication
     Dosage: (326A)
     Route: 065
     Dates: start: 20150529
  5. MANTINEX FLAS [Concomitant]
     Indication: Product used for unknown indication
     Dosage: EFG, 56 TABLETS
     Route: 065
     Dates: start: 20151204

REACTIONS (3)
  - Asthenia [Recovering/Resolving]
  - Lower gastrointestinal haemorrhage [Recovered/Resolved]
  - Drug interaction [Unknown]

NARRATIVE: CASE EVENT DATE: 20221024
